FAERS Safety Report 9422390 (Version 2)
Quarter: 2013Q4

REPORT INFORMATION
  Report Type: Spontaneous
  Country: US (occurrence: US)
  Receive Date: 20130726
  Receipt Date: 20131105
  Transmission Date: 20140711
  Serious: Yes (Other)
  Sender: FDA-Public Use
  Company Number: US-PFIZER INC-2011302084

PATIENT
  Age: 78 Year
  Sex: Female
  Weight: 100 kg

DRUGS (10)
  1. LIPITOR [Suspect]
     Indication: BLOOD CHOLESTEROL ABNORMAL
     Dosage: UNK
     Route: 048
  2. NEURONTIN [Suspect]
     Indication: DIABETIC NEUROPATHY
     Dosage: UNK
  3. OMEPRAZOLE [Concomitant]
     Indication: DYSPEPSIA
     Dosage: 20 MG, 2X/DAY
  4. COZAAR [Concomitant]
     Indication: BLOOD PRESSURE ABNORMAL
     Dosage: 50 MG, 2X/DAY
  5. COREG [Concomitant]
     Indication: CARDIAC DISORDER
     Dosage: 25 MG, 2X/DAY
  6. LANTUS [Concomitant]
     Indication: DIABETES MELLITUS
     Dosage: 48 IU, DAILY
  7. NOVOLOG [Concomitant]
     Indication: DIABETES MELLITUS
     Dosage: 15 IU, AS NEEDED
  8. BABY ASPIRIN [Concomitant]
     Dosage: 81 MG, DAILY
  9. TYLENOL [Concomitant]
     Indication: ARTHRALGIA
     Dosage: 1000 (TWO 500 MG TABLETS) MG, 2X/DAY
     Route: 048
  10. TRAMADOL HYDROCHLORIDE [Concomitant]
     Indication: ARTHRALGIA
     Dosage: 50 MG, AS NEEDED

REACTIONS (3)
  - Transient ischaemic attack [Not Recovered/Not Resolved]
  - Memory impairment [Not Recovered/Not Resolved]
  - Chronic obstructive pulmonary disease [Unknown]
